FAERS Safety Report 8417993-8 (Version None)
Quarter: 2012Q2

REPORT INFORMATION
  Report Type: 
  Country: None (occurrence: None)
  Receive Date: 20120531
  Receipt Date: 20120531
  Transmission Date: 20120825
  Serious: Yes (Life-Threatening, Hospitalization, Other)
  Sender: FDA-Public Use
  Company Number: None

PATIENT
  Sex: Female
  Weight: 102.5129 kg

DRUGS (4)
  1. DURAGESIC-100 [Suspect]
     Indication: MIGRAINE
  2. DURAGESIC-100 [Suspect]
     Indication: ENDOMETRIOSIS
  3. DURAGESIC-100 [Suspect]
     Indication: PELVIC PAIN
  4. DURAGESIC-100 [Suspect]
     Indication: BACK PAIN

REACTIONS (6)
  - VOMITING [None]
  - HYPOVENTILATION [None]
  - ASTHENIA [None]
  - DYSPNOEA [None]
  - HYPOTENSION [None]
  - NAUSEA [None]
